FAERS Safety Report 24693214 (Version 2)
Quarter: 2025Q3

REPORT INFORMATION
  Report Type: Spontaneous
  Country: EU (occurrence: EU)
  Receive Date: 20241203
  Receipt Date: 20250803
  Transmission Date: 20251021
  Serious: Yes (Life-Threatening, Other)
  Sender: ALEXION PHARMACEUTICALS
  Company Number: 2024014870-000

PATIENT
  Sex: Female
  Weight: 60 kg

DRUGS (2)
  1. QUETIAPINE FUMARATE [Suspect]
     Active Substance: QUETIAPINE FUMARATE
     Dosage: 2250 MILLIGRAM, QD
     Dates: start: 20241013, end: 20241013
  2. LAMOTRIGINE [Suspect]
     Active Substance: LAMOTRIGINE
     Indication: Product used for unknown indication
     Dosage: 350 MILLIGRAM, QD
     Dates: start: 20241013, end: 20241013

REACTIONS (3)
  - Suicide attempt [Unknown]
  - Sluggishness [Unknown]
  - Intentional overdose [Unknown]

NARRATIVE: CASE EVENT DATE: 20241013
